FAERS Safety Report 5828059-5 (Version None)
Quarter: 2008Q3

REPORT INFORMATION
  Report Type: 
  Country: None (occurrence: None)
  Receive Date: 20080730
  Receipt Date: 20080305
  Transmission Date: 20090109
  Serious: No
  Sender: FDA-Public Use
  Company Number: A0715291A

PATIENT
  Sex: Male

DRUGS (1)
  1. ZANTAC [Suspect]
     Indication: DRUG USE FOR UNKNOWN INDICATION

REACTIONS (2)
  - DRY MOUTH [None]
  - DYSPHONIA [None]
